FAERS Safety Report 21643086 (Version 1)
Quarter: 2022Q4

REPORT INFORMATION
  Report Type: Spontaneous
  Country: US (occurrence: US)
  Receive Date: 20221125
  Receipt Date: 20221125
  Transmission Date: 20230112
  Serious: No
  Sender: FDA-Public Use
  Company Number: US-SANOFI-01375511

PATIENT
  Sex: Female

DRUGS (1)
  1. DUPIXENT [Suspect]
     Active Substance: DUPILUMAB
     Indication: Lichen sclerosus
     Dosage: UNK

REACTIONS (3)
  - Lichen sclerosus [Unknown]
  - Condition aggravated [Unknown]
  - Product use in unapproved indication [Unknown]
